FAERS Safety Report 10556073 (Version 1)
Quarter: 2014Q4

REPORT INFORMATION
  Report Type: Spontaneous
  Country: TR (occurrence: TR)
  Receive Date: 20141030
  Receipt Date: 20141030
  Transmission Date: 20150529
  Serious: Yes (Hospitalization)
  Sender: FDA-Public Use
  Company Number: PHHY2014TR139069

PATIENT
  Age: 37 Year
  Sex: Male

DRUGS (1)
  1. METHYLPREDNISOLONE. [Suspect]
     Active Substance: METHYLPREDNISOLONE
     Indication: STEROID THERAPY
     Dosage: 80 MG, UNK
     Route: 008

REACTIONS (4)
  - Chest pain [Recovered/Resolved]
  - Pneumorrhachis [Recovered/Resolved]
  - Pneumocephalus [Recovered/Resolved]
  - Headache [Recovered/Resolved]
